FAERS Safety Report 14225058 (Version 2)
Quarter: 2018Q1

REPORT INFORMATION
  Report Type: Spontaneous
  Country: CN (occurrence: CN)
  Receive Date: 20171127
  Receipt Date: 20180111
  Transmission Date: 20180508
  Serious: Yes (Hospitalization, Other)
  Sender: FDA-Public Use
  Company Number: CN-SUN PHARMACEUTICAL INDUSTRIES LTD-2017R1-155136

PATIENT
  Age: 72 Year
  Sex: Female

DRUGS (1)
  1. DECITABINE. [Suspect]
     Active Substance: DECITABINE
     Indication: CHRONIC MYELOMONOCYTIC LEUKAEMIA
     Dosage: 10 CYCLICAL
     Route: 065
     Dates: start: 201409, end: 201606

REACTIONS (2)
  - Thrombocytopenia [Recovered/Resolved]
  - Gene mutation [Unknown]
